FAERS Safety Report 15297268 (Version 1)
Quarter: 2018Q3

REPORT INFORMATION
  Report Type: Spontaneous
  Country: JP (occurrence: JP)
  Receive Date: 20180820
  Receipt Date: 20180820
  Transmission Date: 20181010
  Serious: Yes (Death, Other)
  Sender: FDA-Public Use
  Company Number: JP-NOVOPROD-616296

PATIENT
  Age: 47 Year
  Sex: Male

DRUGS (3)
  1. NOVOSEVEN [Suspect]
     Active Substance: COAGULATION FACTOR VIIA RECOMBINANT HUMAN
     Indication: LOWER GASTROINTESTINAL HAEMORRHAGE
  2. NOVOSEVEN [Suspect]
     Active Substance: COAGULATION FACTOR VIIA RECOMBINANT HUMAN
     Indication: FACTOR VIII DEFICIENCY
     Dosage: 25MG
     Route: 042
     Dates: start: 20180616, end: 20180617
  3. FEIBA [Suspect]
     Active Substance: ANTI-INHIBITOR COAGULANT COMPLEX
     Indication: LOWER GASTROINTESTINAL HAEMORRHAGE
     Dosage: 5000IU
     Route: 042
     Dates: start: 20180618, end: 20180620

REACTIONS (2)
  - Cardiac failure [Fatal]
  - Infection [Unknown]

NARRATIVE: CASE EVENT DATE: 20180809
